FAERS Safety Report 21832031 (Version 1)
Quarter: 2023Q1

REPORT INFORMATION
  Report Type: Spontaneous
  Country: US (occurrence: US)
  Receive Date: 20230106
  Receipt Date: 20230106
  Transmission Date: 20230418
  Serious: Yes (Other)
  Sender: FDA-Public Use
  Company Number: US-002147023-NVSC2023US001389

PATIENT
  Age: 40 Year
  Sex: Female

DRUGS (3)
  1. BICALUTAMIDE [Suspect]
     Active Substance: BICALUTAMIDE
     Indication: Ovarian granulosa cell tumour
     Dosage: 50 MG, QD
     Route: 048
  2. LEUPROLIDE ACETATE [Suspect]
     Active Substance: LEUPROLIDE ACETATE
     Indication: Ovarian granulosa cell tumour
     Dosage: 7.5 MG, Q4W (INJECTION)
     Route: 030
  3. EXEMESTANE [Suspect]
     Active Substance: EXEMESTANE
     Indication: Ovarian granulosa cell tumour
     Dosage: UNK, QD
     Route: 048

REACTIONS (3)
  - Hot flush [Unknown]
  - Product use in unapproved indication [Unknown]
  - Therapy partial responder [Unknown]
